FAERS Safety Report 7618450-9 (Version None)
Quarter: 2011Q3

REPORT INFORMATION
  Report Type: 
  Country: None (occurrence: None)
  Receive Date: 20110718
  Receipt Date: 20110711
  Transmission Date: 20111222
  Serious: Yes (Hospitalization)
  Sender: FDA-Public Use
  Company Number: DE-MERCK-1105DEU00096

PATIENT
  Age: 76 Year
  Sex: Female

DRUGS (3)
  1. ZOCOR [Suspect]
     Route: 048
     Dates: start: 20110406, end: 20110101
  2. ZOCOR [Suspect]
     Route: 048
     Dates: start: 20110101, end: 20110519
  3. ZOCOR [Suspect]
     Indication: BLOOD CHOLESTEROL INCREASED
     Route: 048
     Dates: start: 20110520

REACTIONS (5)
  - MYALGIA [None]
  - CARDIAC DISCOMFORT [None]
  - NAUSEA [None]
  - WRONG TECHNIQUE IN DRUG USAGE PROCESS [None]
  - CARDIOVASCULAR DISORDER [None]
